FAERS Safety Report 16964711 (Version 1)
Quarter: 2019Q4

REPORT INFORMATION
  Report Type: Other
  Country: DE (occurrence: DE)
  Receive Date: 20191028
  Receipt Date: 20191028
  Transmission Date: 20200122
  Serious: Yes (Death, Other)
  Sender: FDA-Public Use
  Company Number: DE-DEXPHARM-20190919

PATIENT
  Age: 46 Year
  Sex: Male

DRUGS (5)
  1. LEVETIRACETAM. [Suspect]
     Active Substance: LEVETIRACETAM
  2. DIAZEPAM. [Suspect]
     Active Substance: DIAZEPAM
  3. TEMAZEPAM. [Suspect]
     Active Substance: TEMAZEPAM
  4. U-47700 [Suspect]
     Active Substance: U-47700
  5. NORDAZEPAM [Suspect]
     Active Substance: NORDAZEPAM

REACTIONS (2)
  - Brain oedema [Fatal]
  - Pulmonary oedema [Fatal]
